FAERS Safety Report 22310255 (Version 2)
Quarter: 2023Q2

REPORT INFORMATION
  Report Type: Spontaneous
  Country: GB (occurrence: GB)
  Receive Date: 20230511
  Receipt Date: 20230519
  Transmission Date: 20230722
  Serious: Yes (Death, Hospitalization, Other)
  Sender: FDA-Public Use
  Company Number: None

PATIENT
  Age: 92 Year
  Sex: Male

DRUGS (3)
  1. ATORVASTATIN [Suspect]
     Active Substance: ATORVASTATIN
     Indication: Product used for unknown indication
     Route: 065
  2. FLUCLOXACILLIN [Suspect]
     Active Substance: FLUCLOXACILLIN
     Indication: Product used for unknown indication
     Dosage: 2000 MILLIGRAM DAILY; UNIT DOSE:500MG, FREQUENCY: FOUR TIMES DAILY
     Route: 065
     Dates: start: 20230106
  3. FLUCLOXACILLIN [Suspect]
     Active Substance: FLUCLOXACILLIN
     Dosage: 4 GRAM DAILY; UNIT DOSE: 1G, FREQUENCY: FOUR TIMES DAILY
     Route: 065
     Dates: end: 20230108

REACTIONS (2)
  - Drug-induced liver injury [Fatal]
  - Liver function test abnormal [Unknown]
